FAERS Safety Report 15235176 (Version 2)
Quarter: 2018Q3

REPORT INFORMATION
  Report Type: Spontaneous
  Country: MX (occurrence: MX)
  Receive Date: 20180803
  Receipt Date: 20180807
  Transmission Date: 20181010
  Serious: Yes (Other)
  Sender: FDA-Public Use
  Company Number: MX-B.I. PHARMACEUTICALS,INC./RIDGEFIELD-2018-BI-038881

PATIENT
  Age: 69 Year
  Sex: Female

DRUGS (2)
  1. SIFROL ER [Suspect]
     Active Substance: PRAMIPEXOLE
     Indication: PARKINSON^S DISEASE
     Route: 065
  2. SIFROL ER [Suspect]
     Active Substance: PRAMIPEXOLE
     Dosage: INCREASED DOSE EVERY MONTH UP TO 3 MG
     Route: 065

REACTIONS (1)
  - Pituitary haemorrhage [Unknown]
